FAERS Safety Report 8437832-9 (Version None)
Quarter: 2012Q2

REPORT INFORMATION
  Report Type: 
  Country: None (occurrence: None)
  Receive Date: 20120614
  Receipt Date: 20120516
  Transmission Date: 20120825
  Serious: No
  Sender: FDA-Public Use
  Company Number: US-AMGEN-USASP2011000426

PATIENT
  Age: 78 Year
  Sex: Female

DRUGS (12)
  1. ASMANEX TWISTHALER [Concomitant]
     Dosage: UNK
  2. NEXIUM [Concomitant]
     Dosage: UNK
  3. ERYTHROMYCIN [Concomitant]
     Dosage: UNK
  4. LORTAB [Concomitant]
     Dosage: UNK
  5. SINGULAIR [Concomitant]
     Dosage: UNK
  6. CALCIUM [Concomitant]
     Dosage: UNK
  7. VITAMIN D [Concomitant]
     Dosage: UNK
  8. PROLIA [Suspect]
     Indication: OSTEOPOROSIS POSTMENOPAUSAL
     Dosage: 60 MG, Q6MO
     Dates: start: 20101103
  9. ALBUTEROL [Concomitant]
     Dosage: UNK
  10. CRESTOR [Concomitant]
     Dosage: UNK
  11. VITAMIN TAB [Concomitant]
     Dosage: UNK
  12. CLARINEX [Concomitant]
     Dosage: UNK

REACTIONS (18)
  - TOOTHACHE [None]
  - MICTURITION URGENCY [None]
  - PAIN [None]
  - PETECHIAE [None]
  - BACK PAIN [None]
  - PAIN IN EXTREMITY [None]
  - GASTROINTESTINAL MOTILITY DISORDER [None]
  - ORAL PAIN [None]
  - ASTHENIA [None]
  - GASTROOESOPHAGEAL REFLUX DISEASE [None]
  - STOMATITIS [None]
  - GINGIVAL PAIN [None]
  - EAR INFECTION [None]
  - DYSPEPSIA [None]
  - SENSATION OF HEAVINESS [None]
  - SKIN REACTION [None]
  - FATIGUE [None]
  - OEDEMA MOUTH [None]
